FAERS Safety Report 5972678-2 (Version None)
Quarter: 2008Q4

REPORT INFORMATION
  Report Type: 
  Country: None (occurrence: None)
  Receive Date: 20081201
  Receipt Date: 20081120
  Transmission Date: 20090506
  Serious: Yes (Hospitalization)
  Sender: FDA-Public Use
  Company Number: CZ-JNJFOC-20081101021

PATIENT
  Age: 62 Year
  Sex: Female
  Weight: 70 kg

DRUGS (7)
  1. REMICADE [Suspect]
     Dosage: TOTAL OF 4 INFUSIONS ADMINISTERED
     Route: 042
  2. REMICADE [Suspect]
     Dosage: INFUSIONS 2 + 3, DATES NOT REPORTED
     Route: 042
  3. REMICADE [Suspect]
     Indication: CROHN'S DISEASE
     Route: 042
  4. IMURAN [Concomitant]
  5. MESALAZIN [Concomitant]
  6. PREDNISONE [Concomitant]
  7. SOLU-MEDROL [Concomitant]

REACTIONS (1)
  - DISSEMINATED TUBERCULOSIS [None]
